FAERS Safety Report 12861757 (Version 1)
Quarter: 2016Q4

REPORT INFORMATION
  Report Type: Spontaneous
  Country: GB (occurrence: GB)
  Receive Date: 20161019
  Receipt Date: 20161019
  Transmission Date: 20170207
  Serious: Yes (Other)
  Sender: FDA-Public Use
  Company Number: GB-TEVA-700298ACC

PATIENT
  Sex: Female

DRUGS (2)
  1. ANASTROZOLE. [Suspect]
     Active Substance: ANASTROZOLE
     Route: 065
     Dates: start: 2013
  2. ANASTROZOLE (ACCORD) [Suspect]
     Active Substance: ANASTROZOLE
     Route: 065

REACTIONS (20)
  - Memory impairment [Unknown]
  - Hiatus hernia [Unknown]
  - Oesophagitis [Unknown]
  - Nausea [Unknown]
  - Sleep disorder [Unknown]
  - Dupuytren^s contracture [Unknown]
  - Adverse event [Unknown]
  - Myalgia [Unknown]
  - Lethargy [Unknown]
  - Paraesthesia [Unknown]
  - Palpitations [Unknown]
  - Headache [Unknown]
  - Muscular weakness [Unknown]
  - Trigger finger [None]
  - Gastrooesophageal reflux disease [Unknown]
  - Cataract [Unknown]
  - Bone pain [Unknown]
  - Depression [Unknown]
  - Dry skin [Unknown]
  - Mood swings [Unknown]
